FAERS Safety Report 8810721 (Version 2)
Quarter: 2012Q4

REPORT INFORMATION
  Report Type: 
  Country: US (occurrence: US)
  Receive Date: 20120927
  Receipt Date: 20121122
  Transmission Date: 20130627
  Serious: No
  Sender: FDA-Public Use
  Company Number: US-PFIZER INC-2012235000

PATIENT
  Age: 75 Year
  Sex: Male
  Weight: 96.1 kg

DRUGS (6)
  1. SUTENT [Suspect]
     Indication: RENAL CELL CARCINOMA
     Dosage: 50 mg, daily
     Dates: start: 20120911
  2. SUTENT [Suspect]
     Dosage: UNK, cyclic (2 weeks on and one week off)
  3. NORVASC [Suspect]
     Indication: BLOOD PRESSURE HIGH
     Dosage: 5 mg, daily
  4. LASIX [Concomitant]
     Dosage: 40 mg, 3x/week
     Dates: start: 2012
  5. LASIX [Concomitant]
     Dosage: 40 mg, Daily
     Dates: start: 2012
  6. RIVAROXABAN [Concomitant]
     Indication: ARRHYTHMIA
     Dosage: UNK
     Dates: start: 201201

REACTIONS (6)
  - Blood creatine increased [Unknown]
  - Blood urea increased [Unknown]
  - Blood pressure increased [Recovering/Resolving]
  - Epistaxis [Recovered/Resolved]
  - Oedema peripheral [Unknown]
  - Epistaxis [Unknown]
